FAERS Safety Report 16929644 (Version 1)
Quarter: 2019Q4

REPORT INFORMATION
  Report Type: Spontaneous
  Country: CZ (occurrence: CZ)
  Receive Date: 20191017
  Receipt Date: 20191017
  Transmission Date: 20200122
  Serious: Yes (Other)
  Sender: FDA-Public Use
  Company Number: CZ-PFIZER INC-2019371472

PATIENT

DRUGS (10)
  1. BUDAIR [Concomitant]
     Indication: ASTHMA
  2. THEOPHYLLINE [Suspect]
     Active Substance: THEOPHYLLINE ANHYDROUS
     Dosage: UNK
  3. EWOFEX [Concomitant]
     Indication: ASTHMA
  4. MOMMOX [Concomitant]
     Active Substance: MOMETASONE FUROATE
     Indication: ASTHMA
  5. SYMBICORT [Concomitant]
     Active Substance: BUDESONIDE\FORMOTEROL FUMARATE DIHYDRATE
     Indication: ASTHMA
  6. MEDROL [Suspect]
     Active Substance: METHYLPREDNISOLONE
     Dosage: UNK
  7. ERDOMED [Concomitant]
     Active Substance: ERDOSTEINE
     Indication: ASTHMA
  8. SINGULAIR [Suspect]
     Active Substance: MONTELUKAST SODIUM
     Dosage: UNK
  9. MEPOLIZUMAB [Suspect]
     Active Substance: MEPOLIZUMAB
     Dosage: 100 MG, UNK
     Route: 058
     Dates: start: 20190614
  10. BERODUAL [Concomitant]
     Active Substance: FENOTEROL HYDROBROMIDE\IPRATROPIUM BROMIDE
     Indication: ASTHMA
     Dosage: UNK UNK, AS NEEDED

REACTIONS (5)
  - Skin reaction [Recovered/Resolved]
  - Rash maculo-papular [Not Recovered/Not Resolved]
  - Vasculitis [Unknown]
  - Type III immune complex mediated reaction [Unknown]
  - Arthralgia [Unknown]

NARRATIVE: CASE EVENT DATE: 20190616
